FAERS Safety Report 17068814 (Version 1)
Quarter: 2019Q4

REPORT INFORMATION
  Report Type: Spontaneous
  Country: US (occurrence: US)
  Receive Date: 20191025
  Receipt Date: 20191025
  Transmission Date: 20200122
  Serious: No
  Sender: FDA-Public Use
  Company Number: None

PATIENT
  Age: 61 Year
  Sex: Female

DRUGS (4)
  1. VITAMIN D [Concomitant]
     Active Substance: VITAMIN D NOS
  2. MULTIVITAMINS [Concomitant]
     Active Substance: VITAMINS
  3. SUTENT [Suspect]
     Active Substance: SUNITINIB MALATE
     Indication: NEUROENDOCRINE TUMOUR
     Route: 048
     Dates: start: 201909
  4. OCTREOTIDE. [Concomitant]
     Active Substance: OCTREOTIDE

REACTIONS (2)
  - Off label use [None]
  - Platelet count decreased [None]

NARRATIVE: CASE EVENT DATE: 20191025
